FAERS Safety Report 13751975 (Version 3)
Quarter: 2019Q3

REPORT INFORMATION
  Report Type: Spontaneous
  Country: IT (occurrence: IT)
  Receive Date: 20170713
  Receipt Date: 20190722
  Transmission Date: 20191004
  Serious: Yes (Hospitalization, Other)
  Sender: FDA-Public Use
  Company Number: IT-009507513-1707ITA001524

PATIENT
  Age: 36 Year
  Sex: Male

DRUGS (10)
  1. VITAMIN A [Suspect]
     Active Substance: VITAMIN A
     Indication: MUSCLE BUILDING THERAPY
     Dosage: 40000 IU, QD (40000 IU, 1 D)
     Route: 065
  2. TESTOSTERONE UNDECANOATE. [Suspect]
     Active Substance: TESTOSTERONE UNDECANOATE
     Indication: MUSCLE BUILDING THERAPY
     Dosage: UNKNOWN
     Route: 065
  3. TRENBOLONE ACETATE [Suspect]
     Active Substance: TRENBOLONE ACETATE
     Indication: MUSCLE BUILDING THERAPY
     Dosage: TAKEN FROM 2 TO 3 TIMES PER WEEK
     Route: 030
  4. SOMATROPIN. [Suspect]
     Active Substance: SOMATROPIN
     Indication: MUSCLE BUILDING THERAPY
     Dosage: 4.8 INTERNATIONAL UNIT, QD
     Route: 030
  5. METHYLTESTOSTERONE. [Suspect]
     Active Substance: METHYLTESTOSTERONE
     Indication: MUSCLE BUILDING THERAPY
     Dosage: TAKEN FROM 2 TO 3 TIMES PER WEEK
     Route: 030
  6. GONADOTROPIN, CHORIONIC [Suspect]
     Active Substance: CHORIOGONADOTROPIN ALFA
     Indication: MUSCLE BUILDING THERAPY
     Dosage: UNKNOWN
     Route: 065
  7. INSULIN [Suspect]
     Active Substance: INSULIN NOS
     Indication: MUSCLE BUILDING THERAPY
     Dosage: 5 IU, QD
     Route: 058
  8. TESTOVIRON [Suspect]
     Active Substance: TESTOSTERONE
     Indication: MUSCLE BUILDING THERAPY
     Dosage: UNKNOWN
     Route: 030
  9. NANDROLONE DECANOATE. [Suspect]
     Active Substance: NANDROLONE DECANOATE
     Indication: MUSCLE BUILDING THERAPY
     Dosage: UNKNOWN
     Route: 065
  10. SOMATROPIN. [Suspect]
     Active Substance: SOMATROPIN
     Indication: MUSCLE BUILDING THERAPY
     Dosage: UNK
     Route: 030

REACTIONS (5)
  - Intracranial pressure increased [Unknown]
  - Product administration error [Unknown]
  - Inappropriate schedule of product administration [Unknown]
  - Off label use [Unknown]
  - Drug use disorder [Unknown]
